FAERS Safety Report 4346487-4 (Version None)
Quarter: 2004Q2

REPORT INFORMATION
  Report Type: 
  Country: None (occurrence: None)
  Receive Date: 20040426
  Receipt Date: 20030808
  Transmission Date: 20050107
  Serious: No
  Sender: FDA-Public Use
  Company Number: US-BRISTOL-MYERS SQUIBB COMPANY-12352357

PATIENT
  Age: 78 Year
  Sex: Male

DRUGS (2)
  1. PARAPLATIN [Suspect]
     Indication: LUNG NEOPLASM MALIGNANT
     Route: 042
     Dates: start: 20030716, end: 20030716
  2. VEPESID [Suspect]
     Indication: LUNG NEOPLASM MALIGNANT
     Route: 042
     Dates: start: 20030716, end: 20030718

REACTIONS (1)
  - HEPATIC FUNCTION ABNORMAL [None]
